FAERS Safety Report 21167023 (Version 1)
Quarter: 2022Q3

REPORT INFORMATION
  Report Type: Spontaneous
  Country: US (occurrence: US)
  Receive Date: 20220803
  Receipt Date: 20220803
  Transmission Date: 20221027
  Serious: Yes (Death, Other)
  Sender: FDA-Public Use
  Company Number: US-BRISTOL-MYERS SQUIBB COMPANY-2022-084119

PATIENT
  Age: 60 Year
  Sex: Male
  Weight: 59.78 kg

DRUGS (4)
  1. OPDIVO [Suspect]
     Active Substance: NIVOLUMAB
     Indication: Hepatic cancer
     Route: 042
  2. OPDIVO [Suspect]
     Active Substance: NIVOLUMAB
     Indication: Metastases to bone
  3. YERVOY [Suspect]
     Active Substance: IPILIMUMAB
     Indication: Hepatic cancer
     Route: 042
  4. YERVOY [Suspect]
     Active Substance: IPILIMUMAB
     Indication: Metastases to bone

REACTIONS (2)
  - Death [Fatal]
  - Off label use [Unknown]
